FAERS Safety Report 4869416-3 (Version None)
Quarter: 2005Q4

REPORT INFORMATION
  Report Type: 
  Country: None (occurrence: None)
  Receive Date: 20051230
  Receipt Date: 20051005
  Transmission Date: 20060501
  Serious: Yes (Death, Hospitalization)
  Sender: FDA-Public Use
  Company Number: US-MERCK-0510USA04764

PATIENT
  Age: 80 Year
  Sex: Female
  Weight: 55 kg

DRUGS (11)
  1. VIOXX [Suspect]
     Indication: ARTHRITIS
     Route: 048
     Dates: start: 20020627, end: 20030516
  2. VIOXX [Suspect]
     Route: 048
     Dates: start: 20030818, end: 20040423
  3. VIOXX [Suspect]
     Route: 048
     Dates: end: 20030627
  4. FLUOXETINE [Concomitant]
     Route: 065
  5. ACIPHEX [Concomitant]
     Route: 065
  6. FERROUS SULFATE [Concomitant]
     Route: 065
  7. METOPROLOL [Concomitant]
     Route: 065
  8. LORAZEPAM [Concomitant]
     Route: 065
  9. DONNATAL [Concomitant]
     Route: 065
  10. MAXZIDE [Concomitant]
     Route: 065
  11. HYDROCHLOROTHIAZIDE AND TRIAMTERENE [Concomitant]
     Route: 065

REACTIONS (7)
  - ABDOMINAL DISTENSION [None]
  - ABDOMINAL PAIN [None]
  - DRUG INEFFECTIVE [None]
  - HYPERTENSION [None]
  - MYOCARDIAL INFARCTION [None]
  - PAIN IN EXTREMITY [None]
  - SPINAL COLUMN STENOSIS [None]
